FAERS Safety Report 17014666 (Version 1)
Quarter: 2019Q4

REPORT INFORMATION
  Report Type: Spontaneous
  Country: US (occurrence: US)
  Receive Date: 20191111
  Receipt Date: 20191111
  Transmission Date: 20200122
  Serious: No
  Sender: FDA-Public Use
  Company Number: US-ALLERGAN-1937212US

PATIENT
  Sex: Female

DRUGS (2)
  1. MINIVILLE ESTRADIOL PATCH [Concomitant]
  2. LO LOESTRIN FE [Suspect]
     Active Substance: ETHINYL ESTRADIOL\NORETHINDRONE ACETATE
     Indication: MIGRAINE
     Dosage: UNK, QD
     Route: 048

REACTIONS (1)
  - Off label use [Unknown]
